FAERS Safety Report 19593521 (Version 1)
Quarter: 2021Q3

REPORT INFORMATION
  Report Type: Spontaneous
  Country: GT (occurrence: GT)
  Receive Date: 20210722
  Receipt Date: 20210722
  Transmission Date: 20211014
  Serious: Yes (Other)
  Sender: FDA-Public Use
  Company Number: NVSC2021GT159798

PATIENT

DRUGS (1)
  1. GLIVEC [Suspect]
     Active Substance: IMATINIB MESYLATE
     Indication: FOETAL EXPOSURE DURING PREGNANCY
     Dosage: PATERNAL EXPOSURE DURING PREGNANCY: 400 MG (1X400 MG TABLET)
     Route: 050

REACTIONS (2)
  - Exposure via father [Unknown]
  - Congenital oral malformation [Unknown]
